FAERS Safety Report 15964957 (Version 4)
Quarter: 2019Q3

REPORT INFORMATION
  Report Type: Spontaneous
  Country: IT (occurrence: IT)
  Receive Date: 20190215
  Receipt Date: 20190703
  Transmission Date: 20191004
  Serious: Yes (Hospitalization)
  Sender: FDA-Public Use
  Company Number: IT-ACCORD-107395

PATIENT
  Age: 61 Year
  Sex: Female
  Weight: 84 kg

DRUGS (3)
  1. FLUOROURACIL. [Suspect]
     Active Substance: FLUOROURACIL
     Indication: ADENOCARCINOMA OF COLON
     Route: 042
     Dates: start: 20170202
  2. AVASTIN [Suspect]
     Active Substance: BEVACIZUMAB
     Indication: ADENOCARCINOMA OF COLON
     Dosage: STRENGTH: 25 MG/ML
     Route: 042
     Dates: start: 20170202
  3. LEVOLEUCOVORIN. [Concomitant]
     Active Substance: LEVOLEUCOVORIN
     Indication: ADENOCARCINOMA OF COLON
     Route: 042
     Dates: start: 20170202

REACTIONS (9)
  - Constipation [Recovering/Resolving]
  - Syncope [Recovering/Resolving]
  - Hypertension [Recovering/Resolving]
  - Troponin increased [Recovering/Resolving]
  - Supraventricular tachycardia [Recovering/Resolving]
  - Leukocytosis [Recovering/Resolving]
  - Abdominal pain upper [Recovering/Resolving]
  - Anaemia [Recovering/Resolving]
  - Asthenia [Recovering/Resolving]

NARRATIVE: CASE EVENT DATE: 20180220
